FAERS Safety Report 5108191-4 (Version None)
Quarter: 2006Q3

REPORT INFORMATION
  Report Type: 
  Country: None (occurrence: None)
  Receive Date: 20060919
  Receipt Date: 20060419
  Transmission Date: 20061208
  Serious: Yes (Death)
  Sender: FDA-Public Use
  Company Number: AT-PURDUE-DEU_2006_0002157

PATIENT
  Age: 32 Year
  Sex: Male

DRUGS (1)
  1. SUBSTITOL RETARD KAPSELN [Suspect]
     Indication: DRUG ABUSER
     Dosage: 150 MG, UNK
     Route: 042
     Dates: start: 20060415

REACTIONS (6)
  - BRAIN OEDEMA [None]
  - DRUG ABUSER [None]
  - OVERDOSE [None]
  - PULMONARY HAEMORRHAGE [None]
  - PULMONARY OEDEMA [None]
  - SELF-MEDICATION [None]
